FAERS Safety Report 8157386-4 (Version None)
Quarter: 2012Q1

REPORT INFORMATION
  Report Type: 
  Country: None (occurrence: None)
  Receive Date: 20120222
  Receipt Date: 20120215
  Transmission Date: 20120608
  Serious: Yes (Death)
  Sender: FDA-Public Use
  Company Number: JP-CELGENEUS-087-50794-12022187

PATIENT
  Sex: Female
  Weight: 38 kg

DRUGS (5)
  1. VIDAZA [Suspect]
     Dosage: 75 MILLIGRAM/SQ. METER
     Route: 041
     Dates: start: 20110711, end: 20110715
  2. RED BLOOD CELLS [Concomitant]
     Route: 041
  3. VIDAZA [Suspect]
     Route: 041
     Dates: start: 20110610, end: 20110616
  4. PLATELETS [Concomitant]
     Route: 041
  5. VIDAZA [Suspect]
     Route: 041
     Dates: start: 20110510, end: 20110516

REACTIONS (2)
  - URINARY TRACT INFECTION [None]
  - CEREBRAL HAEMORRHAGE [None]
